FAERS Safety Report 4647239-8 (Version None)
Quarter: 2005Q2

REPORT INFORMATION
  Report Type: 
  Country: None (occurrence: None)
  Receive Date: 20050426
  Receipt Date: 20050412
  Transmission Date: 20051028
  Serious: Yes (Hospitalization)
  Sender: FDA-Public Use
  Company Number: 2005059546

PATIENT
  Age: 61 Year
  Sex: Female
  Weight: 114.3065 kg

DRUGS (5)
  1. BEXTRA [Suspect]
     Indication: ARTHRALGIA
     Dosage: 20 MG (10 MG, 2 IN 1 D), ORAL
     Route: 048
  2. CORTICOSTEROIDS (CORTICOSTEROIDS) [Concomitant]
  3. CLONIDINE [Concomitant]
  4. TOLTERODINE TARTRATE [Concomitant]
  5. ULTRACET [Concomitant]

REACTIONS (6)
  - ERYTHEMA [None]
  - JOINT SWELLING [None]
  - POST PROCEDURAL COMPLICATION [None]
  - PRURITUS [None]
  - RASH [None]
  - SKIN DISCOLOURATION [None]
